FAERS Safety Report 10082482 (Version 1)
Quarter: 2014Q2

REPORT INFORMATION
  Report Type: Spontaneous
  Country: NL (occurrence: NL)
  Receive Date: 20140416
  Receipt Date: 20140416
  Transmission Date: 20141212
  Serious: Yes (Other)
  Sender: FDA-Public Use
  Company Number: NL-AMGEN-NLDSP2014026518

PATIENT
  Age: 76 Year
  Sex: Male

DRUGS (5)
  1. XGEVA [Suspect]
     Indication: PRODUCT USED FOR UNKNOWN INDICATION
     Dosage: 120 MG, Q4WK
     Route: 058
     Dates: start: 20140117
  2. DICLOFENAC [Concomitant]
  3. OMEPRAZOLE [Concomitant]
  4. ATENOLOL [Concomitant]
  5. TAMSULOSINE [Concomitant]

REACTIONS (4)
  - Joint swelling [Unknown]
  - Hyperhidrosis [Unknown]
  - Rash erythematous [Unknown]
  - Chills [Unknown]
